FAERS Safety Report 8333956-5 (Version None)
Quarter: 2012Q2

REPORT INFORMATION
  Report Type: 
  Country: None (occurrence: None)
  Receive Date: 20120503
  Receipt Date: 20120430
  Transmission Date: 20120825
  Serious: Yes (Other)
  Sender: FDA-Public Use
  Company Number: US-ROCHE-1064338

PATIENT
  Sex: Female

DRUGS (4)
  1. FOSAMAX [Suspect]
     Indication: OSTEITIS DEFORMANS
  2. FOSAMAX [Suspect]
     Indication: OSTEOPOROSIS
     Dates: start: 20010201, end: 20060701
  3. BONIVA [Suspect]
     Indication: OSTEOPOROSIS
     Dates: start: 20060701, end: 20100101
  4. BONIVA [Suspect]
     Indication: OSTEITIS DEFORMANS

REACTIONS (2)
  - FEMUR FRACTURE [None]
  - ANXIETY [None]
